FAERS Safety Report 13254804 (Version 1)
Quarter: 2017Q1

REPORT INFORMATION
  Report Type: Spontaneous
  Country: US (occurrence: US)
  Receive Date: 20170221
  Receipt Date: 20170221
  Transmission Date: 20170428
  Serious: No
  Sender: FDA-Public Use
  Company Number: US-PFIZER INC-2017066168

PATIENT
  Sex: Female

DRUGS (1)
  1. XELJANZ XR [Suspect]
     Active Substance: TOFACITINIB CITRATE
     Dosage: 11 MG, UNK

REACTIONS (16)
  - Tenderness [Unknown]
  - Arthralgia [Unknown]
  - Tinnitus [Unknown]
  - Joint swelling [Unknown]
  - Skin tightness [Unknown]
  - Joint stiffness [Unknown]
  - Peripheral swelling [Unknown]
  - Arthropathy [Unknown]
  - Foot deformity [Unknown]
  - Synovitis [Unknown]
  - Fatigue [Unknown]
  - Contusion [Unknown]
  - Alopecia [Unknown]
  - Crepitations [Unknown]
  - Weight increased [Unknown]
  - Rash [Unknown]
